FAERS Safety Report 7171550-2 (Version None)
Quarter: 2010Q4

REPORT INFORMATION
  Report Type: 
  Country: None (occurrence: None)
  Receive Date: 20101217
  Receipt Date: 20101215
  Transmission Date: 20110411
  Serious: Yes (Other)
  Sender: FDA-Public Use
  Company Number: BE-PFIZER INC-2010139678

PATIENT
  Age: 33 Year
  Sex: Female
  Weight: 86 kg

DRUGS (1)
  1. SOSTILAR [Suspect]
     Indication: HYPERPROLACTINAEMIA
     Dosage: 0.5 MG, WEEKLY
     Route: 048
     Dates: start: 20050901, end: 20100901

REACTIONS (5)
  - FATIGUE [None]
  - MIGRAINE [None]
  - MUSCLE SPASMS [None]
  - MYOSITIS [None]
  - TENDONITIS [None]
